FAERS Safety Report 4643459-7 (Version None)
Quarter: 2005Q2

REPORT INFORMATION
  Report Type: 
  Country: None (occurrence: None)
  Receive Date: 20050323
  Receipt Date: 20040422
  Transmission Date: 20051028
  Serious: Yes (Hospitalization)
  Sender: FDA-Public Use
  Company Number: K200400641

PATIENT
  Age: 89 Year
  Sex: Male
  Weight: 84.8 kg

DRUGS (7)
  1. ALTACE [Suspect]
     Dosage: 5 MG, QD, ORAL
     Route: 048
     Dates: start: 20040228, end: 20040302
  2. WARFARIN SODIUM [Concomitant]
  3. DILTIAZEM [Concomitant]
  4. LEVOFLOXACIN [Concomitant]
  5. ENOXAPARIN SODIUM [Concomitant]
  6. PREVACID [Concomitant]
  7. TAPAZOLE [Concomitant]

REACTIONS (2)
  - BLOOD CREATININE INCREASED [None]
  - RENAL FAILURE [None]
